FAERS Safety Report 8236765-0 (Version None)
Quarter: 2012Q1

REPORT INFORMATION
  Report Type: 
  Country: None (occurrence: None)
  Receive Date: 20120326
  Receipt Date: 20120326
  Transmission Date: 20120608
  Serious: No
  Sender: FDA-Public Use
  Company Number: None

PATIENT
  Sex: Female
  Weight: 68.0396 kg

DRUGS (1)
  1. ADVAIR DISKUS 250/50 [Suspect]
     Indication: RESPIRATORY DISORDER
     Dosage: 250 - 50 8:00 IN MORNING ; 250-50 8:00 NIGHT
     Dates: start: 20091201

REACTIONS (9)
  - HEART RATE INCREASED [None]
  - FALL [None]
  - OROPHARYNGEAL PAIN [None]
  - LUNG DISORDER [None]
  - HEART RATE DECREASED [None]
  - EYE DISORDER [None]
  - DRY MOUTH [None]
  - RENAL DISORDER [None]
  - HYPERTENSION [None]
